FAERS Safety Report 8144270-5 (Version None)
Quarter: 2012Q1

REPORT INFORMATION
  Report Type: 
  Country: None (occurrence: None)
  Receive Date: 20120217
  Receipt Date: 20120208
  Transmission Date: 20120608
  Serious: Yes (Other)
  Sender: FDA-Public Use
  Company Number: IT-JNJFOC-20111102362

PATIENT
  Sex: Male
  Weight: 20 kg

DRUGS (2)
  1. RISPERDAL [Suspect]
     Route: 048
     Dates: start: 20111101
  2. RISPERDAL [Suspect]
     Indication: AUTISM
     Dosage: 2.5 MG+1.5 MG
     Route: 048
     Dates: start: 20111101, end: 20111102

REACTIONS (5)
  - DYSTONIA [None]
  - ACCIDENTAL OVERDOSE [None]
  - DYSKINESIA [None]
  - PSYCHOMOTOR RETARDATION [None]
  - SLUGGISHNESS [None]
